FAERS Safety Report 17144120 (Version 1)
Quarter: 2019Q4

REPORT INFORMATION
  Report Type: Spontaneous
  Country: US (occurrence: US)
  Receive Date: 20191211
  Receipt Date: 20191211
  Transmission Date: 20200122
  Serious: Yes (Other)
  Sender: FDA-Public Use
  Company Number: US-BAXTER-2019BAX025347

PATIENT
  Age: 58 Year
  Sex: Male
  Weight: 59.93 kg

DRUGS (4)
  1. CLOPIDOGREL [Suspect]
     Active Substance: CLOPIDOGREL BISULFATE
     Indication: PRODUCT USED FOR UNKNOWN INDICATION
     Dosage: LAST TAKEN ON 21NOV2019;4:00
     Route: 048
  2. ASPIRIN. [Suspect]
     Active Substance: ASPIRIN
     Indication: PRODUCT USED FOR UNKNOWN INDICATION
     Dosage: LAST TAKEN ON 21NOV2019;4:00
     Route: 048
  3. HEPARIN SODIUM IN 0.9% SODIUM CHLORIDE [Suspect]
     Active Substance: HEPARIN SODIUM\SODIUM CHLORIDE
     Indication: CATHETER MANAGEMENT
     Dosage: 1000 UNITS / 500 ML BAG.
     Route: 042
  4. HEPARIN [Suspect]
     Active Substance: HEPARIN SODIUM
     Indication: PRODUCT USED FOR UNKNOWN INDICATION
     Dosage: STRENGTH: 10,000 UNITS / 10 ML; DOSE: 8000 UNITS
     Route: 040

REACTIONS (1)
  - Retroperitoneal haematoma [Recovering/Resolving]

NARRATIVE: CASE EVENT DATE: 20191121
